FAERS Safety Report 6620979-7 (Version None)
Quarter: 2010Q1

REPORT INFORMATION
  Report Type: 
  Country: None (occurrence: None)
  Receive Date: 20100309
  Receipt Date: 20100224
  Transmission Date: 20100710
  Serious: Yes (Other)
  Sender: FDA-Public Use
  Company Number: PHHY2010US10264

PATIENT
  Sex: Female
  Weight: 62.47 kg

DRUGS (2)
  1. RECLAST [Suspect]
     Indication: OSTEOPENIA
     Dosage: UNK, YEARLY
     Route: 042
     Dates: start: 20081001, end: 20090901
  2. RECLAST [Suspect]
     Dosage: UNK

REACTIONS (10)
  - BONE DISORDER [None]
  - DEBRIDEMENT [None]
  - ERYTHEMA [None]
  - MASS [None]
  - ORAL SURGERY [None]
  - OSTEOMYELITIS [None]
  - OSTEONECROSIS [None]
  - PAIN [None]
  - SOFT TISSUE INFECTION [None]
  - SWELLING [None]
